FAERS Safety Report 4617069-1 (Version None)
Quarter: 2005Q1

REPORT INFORMATION
  Report Type: 
  Country: None (occurrence: None)
  Receive Date: 20050321
  Receipt Date: 20050303
  Transmission Date: 20050727
  Serious: Yes (Death)
  Sender: FDA-Public Use
  Company Number: 10474

PATIENT
  Age: 5 Year
  Sex: Male

DRUGS (7)
  1. METHOTREXATE [Suspect]
     Indication: BURKITT'S LYMPHOMA
     Dosage: 2 G/M2 PER_CYCLE , IT/IV
     Route: 037
  2. VINCRISTINE [Concomitant]
  3. CYCLOPHOSPHAMIDE [Concomitant]
  4. ............... [Concomitant]
  5. PREDNISONE [Concomitant]
  6. HYDROCHORTISONE [Concomitant]
  7. LEUCOVORIN CALCIUM [Concomitant]

REACTIONS (5)
  - DIARRHOEA [None]
  - DRUG TOXICITY [None]
  - MUCOSAL INFLAMMATION [None]
  - REFUSAL OF TREATMENT BY PATIENT [None]
  - VOMITING [None]
